FAERS Safety Report 5582432-1 (Version None)
Quarter: 2007Q4

REPORT INFORMATION
  Report Type: 
  Country: None (occurrence: None)
  Receive Date: 20071130
  Receipt Date: 20070125
  Transmission Date: 20080405
  Serious: Yes (Other)
  Sender: FDA-Public Use
  Company Number: WAES 0701USA04512

PATIENT
  Age: 73 Year
  Sex: Female
  Weight: 87.0906 kg

DRUGS (14)
  1. FOSAMAX [Suspect]
     Indication: OSTEOPOROSIS
     Dosage: 70 MG/WKY/PO
     Route: 048
     Dates: start: 20020101, end: 20060101
  2. CELEBREX [Concomitant]
  3. PLAVIX [Concomitant]
  4. TOPROL-XL [Concomitant]
  5. ZOCOR [Concomitant]
  6. CALCIUM + VITAMIN [Concomitant]
  7. DIGOXIN [Concomitant]
  8. FUROSEMIDE [Concomitant]
  9. GLUCOSAMINE [Concomitant]
  10. LEVOTHYROXINE SODIUM [Concomitant]
  11. LISINOPRIL [Concomitant]
  12. OXYCODONE HCL [Concomitant]
  13. POTASSIUM CHLORIDE [Concomitant]
  14. VITAMINS [Concomitant]

REACTIONS (1)
  - OSTEONECROSIS [None]
